FAERS Safety Report 15677522 (Version 1)
Quarter: 2018Q4

REPORT INFORMATION
  Report Type: Spontaneous
  Country: BR (occurrence: BR)
  Receive Date: 20181130
  Receipt Date: 20181130
  Transmission Date: 20190205
  Serious: Yes (Other)
  Sender: FDA-Public Use
  Company Number: BR-MIST-TIR-2018-1213

PATIENT
  Age: 41 Year
  Sex: Female

DRUGS (1)
  1. LEVOTHYROXINE. [Suspect]
     Active Substance: LEVOTHYROXINE
     Indication: THYROIDECTOMY
     Dosage: 125MCG DAILY

REACTIONS (2)
  - Hyperthyroidism [Unknown]
  - Hypertriglyceridaemia [Recovered/Resolved]
